FAERS Safety Report 7618424-8 (Version None)
Quarter: 2011Q3

REPORT INFORMATION
  Report Type: 
  Country: None (occurrence: None)
  Receive Date: 20110718
  Receipt Date: 20110705
  Transmission Date: 20111222
  Serious: Yes (Other)
  Sender: FDA-Public Use
  Company Number: DE-ROCHE-789977

PATIENT
  Age: 66 Year
  Sex: Female

DRUGS (4)
  1. TRASTUZUMAB [Suspect]
     Route: 065
  2. LAPATINIB [Concomitant]
  3. BEVACIZUMAB [Concomitant]
  4. CAPECITABINE [Concomitant]

REACTIONS (1)
  - DRUG INTOLERANCE [None]
